FAERS Safety Report 25604131 (Version 2)
Quarter: 2025Q3

REPORT INFORMATION
  Report Type: Report from Study
  Country: US (occurrence: US)
  Receive Date: 20250725
  Receipt Date: 20250801
  Transmission Date: 20251020
  Serious: Yes (Other)
  Sender: ABBVIE
  Company Number: US-ABBVIE-6384661

PATIENT
  Age: 71 Year
  Sex: Male
  Weight: 89.811 kg

DRUGS (5)
  1. SKYRIZI [Suspect]
     Active Substance: RISANKIZUMAB-RZAA
     Indication: Psoriasis
     Dosage: STRENGTH: 150 MG
     Route: 058
     Dates: start: 20220910
  2. HYDROCODONE [Concomitant]
     Active Substance: HYDROCODONE
     Indication: Product used for unknown indication
  3. PREGABALIN [Concomitant]
     Active Substance: PREGABALIN
     Indication: Neuropathy peripheral
  4. SODIUM [Concomitant]
     Active Substance: SODIUM
     Indication: Bone density abnormal
  5. PANTOPRAZOLE SODIUM [Concomitant]
     Active Substance: PANTOPRAZOLE SODIUM
     Indication: Gastrointestinal disorder

REACTIONS (7)
  - Arthralgia [Recovering/Resolving]
  - Pain in extremity [Recovering/Resolving]
  - Gait disturbance [Recovering/Resolving]
  - Balance disorder [Recovering/Resolving]
  - Procedural pain [Recovered/Resolved]
  - Inflammation [Recovering/Resolving]
  - Back pain [Not Recovered/Not Resolved]

NARRATIVE: CASE EVENT DATE: 20230101
